FAERS Safety Report 6828145-7 (Version None)
Quarter: 2010Q3

REPORT INFORMATION
  Report Type: 
  Country: None (occurrence: None)
  Receive Date: 20100708
  Receipt Date: 20100708
  Transmission Date: 20110219
  Serious: No
  Sender: FDA-Public Use
  Company Number: None

PATIENT
  Sex: Male

DRUGS (1)
  1. NEXAVAR [Suspect]
     Indication: OVARIAN CANCER
     Dosage: 400 MG BID PO
     Route: 048
     Dates: start: 20100511, end: 20100707

REACTIONS (2)
  - PRURITUS [None]
  - RASH [None]
